FAERS Safety Report 17070597 (Version 2)
Quarter: 2019Q4

REPORT INFORMATION
  Report Type: Spontaneous
  Country: JP (occurrence: JP)
  Receive Date: 20191125
  Receipt Date: 20191220
  Transmission Date: 20200122
  Serious: Yes (Death)
  Sender: FDA-Public Use
  Company Number: JP-JNJFOC-20191123659

PATIENT
  Age: 3 Decade
  Sex: Female

DRUGS (2)
  1. STELARA [Suspect]
     Active Substance: USTEKINUMAB
     Indication: CROHN^S DISEASE
     Dosage: USTEKINUMAB(GENETICAL RECOMBINATION):130MG
     Route: 041
     Dates: end: 20180307
  2. STELARA [Suspect]
     Active Substance: USTEKINUMAB
     Dosage: USTEKINUMAB(GENETICAL RECOMBINATION):45MG
     Route: 058
     Dates: end: 20180801

REACTIONS (1)
  - Renal disorder [Fatal]

NARRATIVE: CASE EVENT DATE: 201909
